FAERS Safety Report 18377949 (Version 1)
Quarter: 2020Q4

REPORT INFORMATION
  Report Type: Report from Study
  Country: None (occurrence: US)
  Receive Date: 20201013
  Receipt Date: 20201013
  Transmission Date: 20210114
  Serious: Yes (Hospitalization, Other)
  Sender: FDA-Public Use
  Company Number: US-BIOVITRUM-2020US2166

PATIENT
  Age: 76 Year
  Sex: Male

DRUGS (2)
  1. KINERET [Suspect]
     Active Substance: ANAKINRA
     Indication: ARTHRITIS
  2. KINERET [Suspect]
     Active Substance: ANAKINRA
     Indication: GOUT
     Dosage: AND EVERY OTHER DAY
     Route: 058
     Dates: start: 20200204

REACTIONS (6)
  - Cardiac disorder [Unknown]
  - Swelling [Unknown]
  - Intentional product misuse [Unknown]
  - Off label use [Unknown]
  - Infection [Unknown]
  - Acute leukaemia [Unknown]

NARRATIVE: CASE EVENT DATE: 20200204
